FAERS Safety Report 5105923-6 (Version None)
Quarter: 2006Q3

REPORT INFORMATION
  Report Type: 
  Country: None (occurrence: None)
  Receive Date: 20060915
  Receipt Date: 20060911
  Transmission Date: 20061208
  Serious: Yes (Hospitalization)
  Sender: FDA-Public Use
  Company Number: US-BOEHRINGER INGELHEIM PHARMACEUTICALS, INC.-2006-BP-10768BP

PATIENT
  Sex: Male

DRUGS (6)
  1. CATAPRES-TTS-1 [Suspect]
     Indication: HYPERTENSION
     Route: 061
     Dates: start: 20030101
  2. MINOXIDIL [Concomitant]
  3. NORVASC [Concomitant]
  4. AVAPRO [Concomitant]
  5. DIGITEC [Concomitant]
  6. NEXIUM [Concomitant]

REACTIONS (3)
  - APPLICATION SITE PRURITUS [None]
  - SCOLIOSIS [None]
  - SPINAL COLUMN STENOSIS [None]
